APPROVED DRUG PRODUCT: AMOXICILLIN AND CLAVULANATE POTASSIUM
Active Ingredient: AMOXICILLIN; CLAVULANATE POTASSIUM
Strength: 500MG;EQ 125MG BASE
Dosage Form/Route: TABLET;ORAL
Application: A065117 | Product #001
Applicant: SANDOZ INC
Approved: Nov 27, 2002 | RLD: No | RS: No | Type: DISCN